FAERS Safety Report 9584817 (Version 1)
Quarter: 2013Q4

REPORT INFORMATION
  Report Type: Spontaneous
  Country: US (occurrence: US)
  Receive Date: 20131002
  Receipt Date: 20131002
  Transmission Date: 20140711
  Serious: No
  Sender: FDA-Public Use
  Company Number: US-AMGEN-USASP2013055163

PATIENT
  Age: 58 Year
  Sex: Female
  Weight: 75.28 kg

DRUGS (5)
  1. ENBREL [Suspect]
     Indication: PRODUCT USED FOR UNKNOWN INDICATION
     Dosage: 50 MG, QWK
     Route: 058
  2. PREMARIN [Concomitant]
     Dosage: 0.45 MG, UNK
     Route: 048
  3. SYNTHROID [Concomitant]
     Dosage: 100 MUG, UNK
     Route: 048
  4. RESTASIS [Concomitant]
     Dosage: 0.05 %, UNK
  5. ATORVASTATIN [Concomitant]
     Dosage: 10 MG, UNK
     Route: 048

REACTIONS (1)
  - Rash generalised [Unknown]
